FAERS Safety Report 9318179 (Version 1)
Quarter: 2013Q2

REPORT INFORMATION
  Report Type: Spontaneous
  Country: FR (occurrence: None)
  Receive Date: 20130523
  Receipt Date: 20130523
  Transmission Date: 20140414
  Serious: Yes (Hospitalization)
  Sender: FDA-Public Use
  Company Number: TPA2013A02547

PATIENT
  Age: 84 Year
  Sex: Male

DRUGS (6)
  1. ADENURIC (FEBUXOSTAT) [Suspect]
     Indication: GOUT
     Route: 048
     Dates: start: 20121204, end: 20121204
  2. COLCHIMAX (COLCHICINE\DICYCLOMINE HYDROCHLORIDE) [Suspect]
     Indication: GOUT
     Route: 048
     Dates: start: 20121204, end: 20130306
  3. KARDEGIC (ACETYLSALICYLATE LYSINE) [Concomitant]
  4. RENITEC (ENALAPRIL MALEATE) [Concomitant]
  5. SEROPLEX (ESCITALOPRAM OXALATE) [Concomitant]
  6. ALPRAZOLAM (ALPRAZOLAM) [Concomitant]

REACTIONS (10)
  - Vitamin D decreased [None]
  - Hepatitis [None]
  - Leukopenia [None]
  - Neutropenia [None]
  - Weight decreased [None]
  - Renal failure [None]
  - Diarrhoea [None]
  - Hepatocellular injury [None]
  - Anxiety [None]
  - Decreased appetite [None]
